FAERS Safety Report 24150579 (Version 1)
Quarter: 2024Q3

REPORT INFORMATION
  Report Type: Spontaneous
  Country: CO (occurrence: CO)
  Receive Date: 20240730
  Receipt Date: 20240730
  Transmission Date: 20241016
  Serious: Yes (Death, Other)
  Sender: CHEPLAPHARM
  Company Number: CO-CHEPLA-2024009442

PATIENT
  Age: 28 Year
  Sex: Female

DRUGS (2)
  1. GANCICLOVIR [Suspect]
     Active Substance: GANCICLOVIR
     Indication: Cytomegalovirus infection
  2. ACYCLOVIR [Suspect]
     Active Substance: ACYCLOVIR

REACTIONS (8)
  - Acute respiratory failure [Fatal]
  - Nephrotic syndrome [Unknown]
  - Congenital aplasia [Unknown]
  - Drug ineffective [Unknown]
  - Klebsiella infection [Unknown]
  - Fungal infection [Unknown]
  - Cardiomegaly [Unknown]
  - Pleural effusion [Unknown]
